FAERS Safety Report 25125334 (Version 1)
Quarter: 2025Q1

REPORT INFORMATION
  Report Type: Spontaneous
  Country: US (occurrence: US)
  Receive Date: 20250326
  Receipt Date: 20250326
  Transmission Date: 20250409
  Serious: Yes (Hospitalization, Other)
  Sender: SANOFI AVENTIS
  Company Number: US-SANOFI-02460424

PATIENT
  Age: 64 Year
  Sex: Male

DRUGS (2)
  1. LANTUS SOLOSTAR [Suspect]
     Active Substance: INSULIN GLARGINE
     Indication: Diabetes mellitus
     Dosage: 30 IU, QD
     Dates: start: 2024
  2. LANTUS SOLOSTAR [Suspect]
     Active Substance: INSULIN GLARGINE
     Dosage: 35 IU, QD

REACTIONS (2)
  - Cancer surgery [Unknown]
  - Product storage error [Unknown]
